FAERS Safety Report 5807594-X (Version None)
Quarter: 2008Q3

REPORT INFORMATION
  Report Type: 
  Country: None (occurrence: None)
  Receive Date: 20080711
  Receipt Date: 20080709
  Transmission Date: 20090109
  Serious: Yes (Life-Threatening)
  Sender: FDA-Public Use
  Company Number: PR-ABBOTT-08P-131-0461760-00

PATIENT
  Sex: Male
  Weight: 81.72 kg

DRUGS (3)
  1. RITONAVIR SOFT GELATIN CAPSULES [Suspect]
     Indication: HIV INFECTION
     Route: 048
     Dates: end: 20080627
  2. TMC125 [Concomitant]
     Indication: HIV INFECTION
     Dates: end: 20080627
  3. PREZISTA [Concomitant]
     Indication: HIV INFECTION
     Dates: end: 20080627

REACTIONS (2)
  - ALANINE AMINOTRANSFERASE INCREASED [None]
  - BLOOD LACTIC ACID INCREASED [None]
